FAERS Safety Report 18227614 (Version 1)
Quarter: 2020Q3

REPORT INFORMATION
  Report Type: Spontaneous
  Country: US (occurrence: US)
  Receive Date: 20200903
  Receipt Date: 20200903
  Transmission Date: 20201103
  Serious: Yes (Hospitalization)
  Sender: FDA-Public Use
  Company Number: None

PATIENT
  Age: 67 Year
  Sex: Male
  Weight: 77.5 kg

DRUGS (1)
  1. CISPLATIN (119875) [Suspect]
     Active Substance: CISPLATIN
     Dates: end: 20200813

REACTIONS (6)
  - Hypophagia [None]
  - Weight decreased [None]
  - Therapy interrupted [None]
  - Dysphagia [None]
  - Odynophagia [None]
  - Decreased appetite [None]

NARRATIVE: CASE EVENT DATE: 20200821
